FAERS Safety Report 13507328 (Version 1)
Quarter: 2017Q2

REPORT INFORMATION
  Report Type: Spontaneous
  Country: US (occurrence: US)
  Receive Date: 20170503
  Receipt Date: 20170503
  Transmission Date: 20170830
  Serious: No
  Sender: FDA-Public Use
  Company Number: US-STRIDES ARCOLAB LIMITED-2017SP006121

PATIENT

DRUGS (1)
  1. TACROLIMUS. [Suspect]
     Active Substance: TACROLIMUS
     Indication: URTICARIA CHRONIC
     Dosage: UNK, UNKNOWN
     Route: 065

REACTIONS (2)
  - Paraesthesia [Recovered/Resolved]
  - Off label use [Unknown]
